FAERS Safety Report 14918864 (Version 15)
Quarter: 2019Q3

REPORT INFORMATION
  Report Type: Spontaneous
  Country: CA (occurrence: CA)
  Receive Date: 20180521
  Receipt Date: 20190913
  Transmission Date: 20191004
  Serious: Yes (Other)
  Sender: FDA-Public Use
  Company Number: CA-CELLTRION INC.-2018CA019857

PATIENT

DRUGS (20)
  1. INFLECTRA [Suspect]
     Active Substance: INFLIXIMAB-DYYB
     Dosage: 7.5 MG/KG, EVERY 6 WEEKS
     Route: 042
     Dates: start: 20181025, end: 20181025
  2. INFLECTRA [Suspect]
     Active Substance: INFLIXIMAB-DYYB
     Dosage: 7.5 MG/KG (ROUND TO NEAREST VIAL), EVERY 4 WEEKS
     Route: 042
     Dates: start: 20190806, end: 20190806
  3. INFLECTRA [Suspect]
     Active Substance: INFLIXIMAB-DYYB
     Indication: COLITIS ULCERATIVE
     Dosage: UNK
     Route: 042
     Dates: start: 20180426, end: 20180426
  4. INFLECTRA [Suspect]
     Active Substance: INFLIXIMAB-DYYB
     Dosage: 7.5 MG/KG, EVERY 6 WEEKS
     Route: 042
     Dates: start: 20190410, end: 20190410
  5. IRON [Concomitant]
     Active Substance: IRON
     Dosage: UNK
     Route: 042
  6. INFLECTRA [Suspect]
     Active Substance: INFLIXIMAB-DYYB
     Dosage: 7.5 MG/KG, EVERY 6 WEEKS
     Route: 042
     Dates: start: 20180913, end: 20180913
  7. INFLECTRA [Suspect]
     Active Substance: INFLIXIMAB-DYYB
     Dosage: 7.5 MG/KG (ROUND TO NEAREST VIAL), EVERY 4 WEEKS
     Route: 042
     Dates: start: 20190518, end: 20190518
  8. SALOFALK [Concomitant]
     Dosage: UNK
     Route: 054
  9. INFLECTRA [Suspect]
     Active Substance: INFLIXIMAB-DYYB
     Dosage: 7.5 MG/KG, EVERY 6 WEEKS
     Route: 042
     Dates: start: 20181206, end: 20181206
  10. CALCIUM [Concomitant]
     Active Substance: CALCIUM
     Dosage: UNK
     Route: 065
  11. INFLECTRA [Suspect]
     Active Substance: INFLIXIMAB-DYYB
     Dosage: 5 MG/KG EVERY 2, 6 WEEKS, THEN EVERY 8 WEEKS
     Route: 042
     Dates: start: 20180606, end: 20180606
  12. MEZAVANT [Concomitant]
     Active Substance: MESALAMINE
     Dosage: 4.8 G, UNK
  13. PREDNISONE. [Concomitant]
     Active Substance: PREDNISONE
     Dosage: TAPERING DOSE
     Route: 065
  14. INFLECTRA [Suspect]
     Active Substance: INFLIXIMAB-DYYB
     Dosage: 7.5 MG/KG (ROUND TO NEAREST VIAL), EVERY 4 WEEKS
     Route: 042
     Dates: start: 20190611, end: 20190611
  15. CORTIMENT [Concomitant]
     Dosage: UNK
     Dates: start: 201803
  16. INFLECTRA [Suspect]
     Active Substance: INFLIXIMAB-DYYB
     Dosage: 5 MG/KG, EVERY 2, 6 WEEKS, THEN EVERY 8 WEEKS
     Route: 042
     Dates: start: 20180510, end: 20180510
  17. INFLECTRA [Suspect]
     Active Substance: INFLIXIMAB-DYYB
     Dosage: 5 MG/KG AT 2, 6 WEEKS THEN EVERY 8 WEEKS
     Route: 042
     Dates: start: 20180801, end: 20180801
  18. INFLECTRA [Suspect]
     Active Substance: INFLIXIMAB-DYYB
     Dosage: 7.5 MG/KG (ROUND TO NEAREST VIAL), EVERY 4 WEEKS
     Route: 042
     Dates: start: 20190709, end: 20190709
  19. INFLECTRA [Suspect]
     Active Substance: INFLIXIMAB-DYYB
     Dosage: 7.5 MG/KG (ROUND TO NEAREST VIAL), EVERY 4 WEEKS
     Route: 042
     Dates: start: 20190903
  20. VITAMIN D [Concomitant]
     Active Substance: VITAMIN D NOS
     Dosage: UNK
     Route: 065

REACTIONS (10)
  - Drug level below therapeutic [Unknown]
  - Drug specific antibody present [Unknown]
  - Insomnia [Unknown]
  - Off label use [Unknown]
  - Blood pressure fluctuation [Not Recovered/Not Resolved]
  - Blood pressure increased [Unknown]
  - Off label use [Unknown]
  - Product use issue [Unknown]
  - Condition aggravated [Unknown]
  - Incorrect dose administered [Unknown]

NARRATIVE: CASE EVENT DATE: 2018
